FAERS Safety Report 6395098-8 (Version None)
Quarter: 2009Q4

REPORT INFORMATION
  Report Type: 
  Country: None (occurrence: None)
  Receive Date: 20091009
  Receipt Date: 20091005
  Transmission Date: 20100525
  Serious: Yes (Hospitalization, Other)
  Sender: FDA-Public Use
  Company Number: US-BAYER-200915181BCC

PATIENT
  Age: 21 Month
  Sex: Female
  Weight: 13 kg

DRUGS (1)
  1. ASPIRIN [Suspect]
     Indication: ACCIDENTAL DRUG INTAKE BY CHILD
     Dosage: ACCIDENTALLY INGESTED 9 TO 15 BAYER CHEWABLE 81MG ASPIRIN CHERRY
     Route: 048
     Dates: start: 20091002, end: 20091002

REACTIONS (2)
  - BLOOD POTASSIUM INCREASED [None]
  - DRUG LEVEL INCREASED [None]
